FAERS Safety Report 14914066 (Version 1)
Quarter: 2018Q2

REPORT INFORMATION
  Report Type: Spontaneous
  Country: US (occurrence: US)
  Receive Date: 20180518
  Receipt Date: 20180518
  Transmission Date: 20180711
  Serious: No
  Sender: FDA-Public Use
  Company Number: US-TEVA-2018-US-892100

PATIENT
  Age: 67 Year
  Sex: Female

DRUGS (1)
  1. CELECOXIB. [Suspect]
     Active Substance: CELECOXIB
     Indication: MUSCULOSKELETAL PAIN
     Route: 065
     Dates: start: 20180508

REACTIONS (3)
  - Mouth swelling [Unknown]
  - Lip swelling [Unknown]
  - Hypersensitivity [Unknown]

NARRATIVE: CASE EVENT DATE: 20180508
